FAERS Safety Report 15149426 (Version 1)
Quarter: 2018Q3

REPORT INFORMATION
  Report Type: Spontaneous
  Country: CH (occurrence: CH)
  Receive Date: 20180716
  Receipt Date: 20180716
  Transmission Date: 20181010
  Serious: Yes (Hospitalization, Other)
  Sender: FDA-Public Use
  Company Number: CH-PFIZER INC-2018280746

PATIENT
  Age: 74 Year
  Sex: Male

DRUGS (20)
  1. AMLODIPIN /00972401/ [Concomitant]
     Active Substance: AMLODIPINE BESYLATE
     Dosage: 5 MG, (1?0?0)
  2. TAVANIC [Concomitant]
     Active Substance: LEVOFLOXACIN
     Indication: IDIOPATHIC PULMONARY FIBROSIS
     Dosage: 750 MG, UNK
     Route: 042
     Dates: start: 20180528, end: 20180603
  3. DAFALGAN [Concomitant]
     Active Substance: ACETAMINOPHEN
     Dosage: 500 MG, UNK
     Route: 048
     Dates: start: 20180601
  4. FRAGMIN [Concomitant]
     Active Substance: DALTEPARIN SODIUM
     Dosage: UNK
  5. COLCHICUM [Concomitant]
     Active Substance: COLCHICINE
     Dosage: 0.5 MG, (1?0?1)
     Dates: start: 2006
  6. BACTRIM [Concomitant]
     Active Substance: SULFAMETHOXAZOLE\TRIMETHOPRIM
     Indication: IDIOPATHIC PULMONARY FIBROSIS
     Dosage: 480 MG, 1X/DAY
     Route: 042
     Dates: start: 20180525
  7. KALIUM /00095801/ [Concomitant]
     Dosage: UNK
  8. CODEIN [Concomitant]
     Active Substance: CODEINE
     Dosage: UNK
  9. MAGNESIOCARD [Concomitant]
     Active Substance: MAGNESIUM ASPARTATE HYDROCHLORIDE
     Dosage: 5 UNK, (1?0?1)
  10. KINERET [Concomitant]
     Active Substance: ANAKINRA
     Dosage: 100 MG, (1?0?0)
     Route: 058
     Dates: start: 20180512, end: 20180521
  11. PANTOPRAZOLE [Concomitant]
     Active Substance: PANTOPRAZOLE
     Dosage: 40 MG, 1X/DAY
     Route: 048
     Dates: start: 20180525
  12. RAMIPRIL. [Concomitant]
     Active Substance: RAMIPRIL
     Dosage: 5 MG, 1?0?0
  13. ASPIRIN. [Concomitant]
     Active Substance: ASPIRIN
     Dosage: 100 MG, (0?0?1)
  14. INSULIN [Concomitant]
     Active Substance: INSULIN NOS
     Dosage: UNK
  15. ATORVASTATIN [Concomitant]
     Active Substance: ATORVASTATIN
     Dosage: 20 MG, (0?0?1)
  16. TAZOBAC [Suspect]
     Active Substance: PIPERACILLIN SODIUM\TAZOBACTAM SODIUM
     Indication: IDIOPATHIC PULMONARY FIBROSIS
     Dosage: 4.5 G, 3X/DAY
     Route: 042
     Dates: start: 20180524, end: 20180528
  17. KLACID /00984601/ [Concomitant]
     Active Substance: CLARITHROMYCIN
     Indication: IDIOPATHIC PULMONARY FIBROSIS
     Dosage: 500 MG, UNK
     Route: 042
     Dates: start: 20180524, end: 20180525
  18. PERFALGAN [Concomitant]
     Active Substance: ACETAMINOPHEN
     Dosage: 1 G, SINGLE
     Route: 042
     Dates: start: 20180527
  19. MORPHIN [Concomitant]
     Active Substance: MORPHINE
     Dosage: UNK, CONTINOUSLY
  20. PROSTA URGENIN [Concomitant]
     Dosage: (0?0?1)

REACTIONS (5)
  - Liver disorder [Recovering/Resolving]
  - Alanine aminotransferase increased [Recovered/Resolved]
  - Blood alkaline phosphatase increased [Recovering/Resolving]
  - Hyperbilirubinaemia [Recovered/Resolved]
  - Eosinophil count increased [Recovered/Resolved]

NARRATIVE: CASE EVENT DATE: 20180528
